FAERS Safety Report 10250986 (Version 2)
Quarter: 2014Q2

REPORT INFORMATION
  Report Type: Spontaneous
  Country: DE (occurrence: DE)
  Receive Date: 20140620
  Receipt Date: 20140620
  Transmission Date: 20141212
  Serious: Yes (Hospitalization)
  Sender: FDA-Public Use
  Company Number: DE-GE HEALTHCARE MEDICAL DIAGNOSTICS-VISP-PR-1405S-0232

PATIENT
  Age: 78 Year
  Sex: Male
  Weight: 65 kg

DRUGS (11)
  1. VISIPAQUE [Suspect]
     Indication: PRODUCT USED FOR UNKNOWN INDICATION
     Route: 042
     Dates: start: 20131210, end: 20131210
  2. VISIPAQUE [Suspect]
     Indication: DIAGNOSTIC PROCEDURE
  3. BERODUAL [Concomitant]
  4. SPIRIVA [Concomitant]
  5. FOSTER [Concomitant]
  6. CANDESARTAN [Concomitant]
  7. DAXAS [Concomitant]
  8. ASS [Concomitant]
  9. PREDNISOLON [Concomitant]
  10. PANTAZOL [Concomitant]
  11. VIGANTOLETTEN [Concomitant]

REACTIONS (2)
  - Swelling [Unknown]
  - Urticaria [Unknown]
